FAERS Safety Report 6752731-6 (Version None)
Quarter: 2010Q2

REPORT INFORMATION
  Report Type: 
  Country: None (occurrence: None)
  Receive Date: 20100528
  Receipt Date: 20100517
  Transmission Date: 20101027
  Serious: Yes (Hospitalization, Other)
  Sender: FDA-Public Use
  Company Number: 2009AC000315

PATIENT
  Age: 62 Year
  Sex: Male

DRUGS (50)
  1. DIGOXIN [Suspect]
     Dosage: 0.25 MG; QD; PO
     Route: 048
     Dates: start: 20011001, end: 20020201
  2. DIGOXIN [Suspect]
     Dosage: 0.25 MG; QD; PO
     Route: 048
     Dates: start: 20020901
  3. PLAVIX [Concomitant]
  4. ASPIRIN [Concomitant]
  5. ZETIA [Concomitant]
  6. ALBUTEROL [Concomitant]
  7. LEVAQUIN [Concomitant]
  8. LISINOPRIL [Concomitant]
  9. GABAPENTIN [Concomitant]
  10. SIMVASTATIN [Concomitant]
  11. SOTALOL [Concomitant]
  12. LYRICA [Concomitant]
  13. METOPROLOL TARTRATE [Concomitant]
  14. LEVAQUIN [Concomitant]
  15. IMDUR [Concomitant]
  16. ADALAT [Concomitant]
  17. ZOCOR [Concomitant]
  18. PROCARDIA [Concomitant]
  19. DICLOFENAC [Concomitant]
  20. BETAPACE [Concomitant]
  21. CENTRUM [Concomitant]
  22. FISH OIL [Concomitant]
  23. NITROGLYCERIN [Concomitant]
  24. VITAMIN B COMPLEX TAB [Concomitant]
  25. COUMADIN [Concomitant]
  26. DIFLUCONAC [Concomitant]
  27. AMIODARONE HYDROCHLORIDE [Concomitant]
  28. PREVACID [Concomitant]
  29. GABAPENTIN [Concomitant]
  30. PREDNISONE [Concomitant]
  31. ISOSORBIDE [Concomitant]
  32. PROCARDIA [Concomitant]
  33. COUAMDIN [Concomitant]
  34. VYTORIN [Concomitant]
  35. MULTI-VITAMIN [Concomitant]
  36. VITAMIN C [Concomitant]
  37. FISH OIL [Concomitant]
  38. EXCEDRIN (MIGRAINE) [Concomitant]
  39. *FOLTX [Concomitant]
  40. VITAMIN E [Concomitant]
  41. TYLENOL [Concomitant]
  42. ATENOLOL [Concomitant]
  43. LOPID [Concomitant]
  44. LIPITOR [Concomitant]
  45. DYAZIDE [Concomitant]
  46. TRICOR [Concomitant]
  47. NIACIN [Concomitant]
  48. MUCOMYST [Concomitant]
  49. LASIX [Concomitant]
  50. NEXIUM [Concomitant]

REACTIONS (36)
  - ACQUIRED DIAPHRAGMATIC EVENTRATION [None]
  - ACUTE MYOCARDIAL INFARCTION [None]
  - ALCOHOL USE [None]
  - AMAUROSIS FUGAX [None]
  - ANAEMIA [None]
  - ANGINA PECTORIS [None]
  - ARTERIOSCLEROSIS CORONARY ARTERY [None]
  - ASTHENIA [None]
  - ATELECTASIS [None]
  - ATRIAL FIBRILLATION [None]
  - ATRIOVENTRICULAR BLOCK FIRST DEGREE [None]
  - CARDIO-RESPIRATORY ARREST [None]
  - CARDIOMEGALY [None]
  - CAROTID ARTERY STENOSIS [None]
  - CHEST PAIN [None]
  - DIZZINESS [None]
  - DUODENAL ULCER HAEMORRHAGE [None]
  - DYSURIA [None]
  - ELECTROCARDIOGRAM ST SEGMENT ELEVATION [None]
  - ELECTROCARDIOGRAM ST-T SEGMENT ABNORMAL [None]
  - FATIGUE [None]
  - GASTROINTESTINAL HAEMORRHAGE [None]
  - GRAFT COMPLICATION [None]
  - HAEMATOMA [None]
  - HAEMATURIA [None]
  - IN-STENT CORONARY ARTERY RESTENOSIS [None]
  - KIDNEY FIBROSIS [None]
  - LETHARGY [None]
  - NEUROPATHY PERIPHERAL [None]
  - OEDEMA PERIPHERAL [None]
  - PAIN IN EXTREMITY [None]
  - PRESYNCOPE [None]
  - SEROMA [None]
  - SINUS BRADYCARDIA [None]
  - SYNOVIAL CYST [None]
  - VENTRICULAR FIBRILLATION [None]
